FAERS Safety Report 7359708 (Version 3)
Quarter: 2014Q1

REPORT INFORMATION
  Report Type: Spontaneous
  Country: AU (occurrence: AU)
  Receive Date: 20100420
  Receipt Date: 20140121
  Transmission Date: 20141002
  Serious: No
  Sender: FDA-Public Use
  Company Number: AU-JNJFOC-20100403140

PATIENT
  Sex: Female

DRUGS (6)
  1. DUROGESIC [Suspect]
     Indication: BACK PAIN
     Route: 062
     Dates: start: 20100401
  2. PANADOL OSTEO [Concomitant]
     Route: 065
  3. UNKNOWN MEDICATION [Concomitant]
     Route: 065
  4. NOTEN [Concomitant]
     Route: 065
  5. MOBIC [Concomitant]
     Route: 065
  6. AZIMAX [Concomitant]
     Route: 065

REACTIONS (4)
  - Wrong technique in drug usage process [Unknown]
  - Nausea [Unknown]
  - Drug ineffective [Unknown]
  - Product quality issue [Unknown]
